FAERS Safety Report 6175464-6 (Version None)
Quarter: 2009Q2

REPORT INFORMATION
  Report Type: 
  Country: None (occurrence: None)
  Receive Date: 20090430
  Receipt Date: 20090420
  Transmission Date: 20091009
  Serious: Yes (Hospitalization)
  Sender: FDA-Public Use
  Company Number: SE-SANOFI-SYNTHELABO-A01200904184

PATIENT
  Age: 59 Year
  Sex: Female

DRUGS (8)
  1. AZATHIOPRINE [Suspect]
     Indication: RHEUMATOID ARTHRITIS
     Dosage: UNK
     Route: 065
  2. CHLORAMBUCIL [Suspect]
     Indication: AMYLOIDOSIS
     Dosage: UNK
     Route: 065
     Dates: start: 19870101, end: 19910101
  3. CHLORAMBUCIL [Suspect]
     Indication: RHEUMATOID ARTHRITIS
     Dosage: UNK
     Route: 065
     Dates: start: 19870101, end: 19910101
  4. CHLORAMBUCIL [Suspect]
     Dosage: UNK
     Route: 065
     Dates: start: 19980101, end: 19990701
  5. CHLORAMBUCIL [Suspect]
     Dosage: UNK
     Route: 065
     Dates: start: 19980101, end: 19990701
  6. CHLOROQUINE PHOSPHATE [Suspect]
     Indication: RHEUMATOID ARTHRITIS
     Dosage: UNK
     Route: 065
  7. SODIUM AUROTHIOMALATE [Concomitant]
     Indication: RHEUMATOID ARTHRITIS
     Dosage: UNK
     Route: 065
  8. GLUCOCORTICOIDS [Concomitant]
     Indication: RHEUMATOID ARTHRITIS
     Dosage: UNK
     Route: 065

REACTIONS (9)
  - BLOOD BRAIN BARRIER DEFECT [None]
  - DISORIENTATION [None]
  - DIZZINESS [None]
  - GAIT DISTURBANCE [None]
  - JC VIRUS INFECTION [None]
  - MOBILITY DECREASED [None]
  - MUSCULAR WEAKNESS [None]
  - PROGRESSIVE MULTIFOCAL LEUKOENCEPHALOPATHY [None]
  - SPEECH DISORDER [None]
